FAERS Safety Report 10192033 (Version 2)
Quarter: 2014Q2

REPORT INFORMATION
  Report Type: Spontaneous
  Country: NL (occurrence: NL)
  Receive Date: 20140523
  Receipt Date: 20140523
  Transmission Date: 20141212
  Serious: Yes (Other)
  Sender: FDA-Public Use
  Company Number: NL-ASTRAZENECA-2014SE30065

PATIENT
  Age: 27016 Day
  Sex: Female

DRUGS (2)
  1. FASLODEX [Suspect]
     Indication: BREAST CANCER METASTATIC
     Dosage: 500 MCG, 1X4 WEEKS
     Route: 030
     Dates: start: 20140414
  2. FASLODEX [Suspect]
     Indication: BREAST CANCER METASTATIC
     Dosage: 500 MCG, 1X4 WEEKS
     Route: 030
     Dates: start: 20140501

REACTIONS (6)
  - Disease progression [Unknown]
  - Terminal state [Not Recovered/Not Resolved]
  - Back pain [Recovering/Resolving]
  - Arthralgia [Recovering/Resolving]
  - Nausea [Recovering/Resolving]
  - Decreased appetite [Recovering/Resolving]
